FAERS Safety Report 4821642-5 (Version None)
Quarter: 2005Q4

REPORT INFORMATION
  Report Type: 
  Country: None (occurrence: None)
  Receive Date: 20051107
  Receipt Date: 20051026
  Transmission Date: 20060501
  Serious: Yes (Hospitalization)
  Sender: FDA-Public Use
  Company Number: JP-MERCK-0511USA00363

PATIENT
  Age: 71 Year
  Sex: Male

DRUGS (11)
  1. PEPCID [Suspect]
     Route: 041
     Dates: start: 20050614, end: 20050706
  2. TARGOCID [Suspect]
     Indication: PNEUMONIA STAPHYLOCOCCAL
     Route: 041
     Dates: start: 20050701, end: 20050704
  3. TARGOCID [Suspect]
     Route: 041
     Dates: start: 20050704, end: 20050706
  4. TARGOCID [Suspect]
     Route: 041
     Dates: start: 20050706, end: 20050713
  5. RADICUT [Concomitant]
     Indication: CEREBRAL INFARCTION
     Route: 042
     Dates: start: 20050618, end: 20050624
  6. OMEPRAL [Concomitant]
     Route: 042
     Dates: start: 20050607, end: 20050704
  7. GLYCEOL [Concomitant]
     Route: 042
     Dates: start: 20050617, end: 20050703
  8. ALEVIATIN [Suspect]
     Indication: CONVULSION
     Route: 041
     Dates: start: 20050618, end: 20050626
  9. MODACIN [Suspect]
     Indication: PNEUMONIA
     Route: 041
     Dates: start: 20050614, end: 20050630
  10. DALACIN [Suspect]
     Indication: PNEUMONIA
     Route: 041
     Dates: start: 20050623, end: 20050630
  11. FLUCONAZOLE [Suspect]
     Indication: SYSTEMIC CANDIDA
     Route: 041
     Dates: start: 20050701, end: 20050721

REACTIONS (2)
  - HEPATIC FUNCTION ABNORMAL [None]
  - RENAL FAILURE ACUTE [None]
